FAERS Safety Report 18849523 (Version 1)
Quarter: 2021Q1

REPORT INFORMATION
  Report Type: Spontaneous
  Country: GB (occurrence: GB)
  Receive Date: 20210205
  Receipt Date: 20210205
  Transmission Date: 20210419
  Serious: Yes (Other)
  Sender: FDA-Public Use
  Company Number: GB-JNJFOC-20210205778

PATIENT
  Age: 37 Year
  Sex: Female
  Weight: 78.8 kg

DRUGS (14)
  1. SALBUTAMOL SULPHATE [Concomitant]
     Active Substance: ALBUTEROL SULFATE
  2. CODEINE [Concomitant]
     Active Substance: CODEINE
  3. LAXIDO [Concomitant]
     Active Substance: POLYETHYLENE GLYCOL 3350\POTASSIUM CHLORIDE\SODIUM BICARBONATE\SODIUM CHLORIDE
  4. ORAMORPH SR SUSTAINED RELEASE [Concomitant]
     Active Substance: MORPHINE SULFATE
  5. PARACETAMOL [Concomitant]
     Active Substance: ACETAMINOPHEN
  6. REMICADE [Suspect]
     Active Substance: INFLIXIMAB
     Indication: COLITIS ULCERATIVE
     Route: 042
     Dates: start: 20210112, end: 20210129
  7. HYDROCORTISONE. [Concomitant]
     Active Substance: HYDROCORTISONE
     Dosage: GIVEN WITH INFLIXIMAB
     Route: 042
  8. MORPHINE SULFATE. [Concomitant]
     Active Substance: MORPHINE SULFATE
  9. PENTASA [Concomitant]
     Active Substance: MESALAMINE
  10. SERETIDE [Concomitant]
     Active Substance: FLUTICASONE PROPIONATE\SALMETEROL XINAFOATE
  11. ANUSOL [BISMUTH HYDROXIDE;BISMUTH SUBGALLATE;BORIC ACID;MYROXYLON BALS [Concomitant]
     Route: 065
  12. CHLORPHENAMINE [Concomitant]
     Active Substance: CHLORPHENIRAMINE MALEATE
     Dosage: GIVEN WITH INFLIXIMAB
     Route: 042
  13. FLUCLOXACILLIN [Concomitant]
     Active Substance: FLUCLOXACILLIN
  14. MERCAPTOPURINE. [Concomitant]
     Active Substance: MERCAPTOPURINE

REACTIONS (8)
  - Dyspnoea [Recovered/Resolved]
  - Paraesthesia [Recovered/Resolved]
  - Hypersensitivity [Recovered/Resolved]
  - Infusion related reaction [Recovered/Resolved]
  - Tachycardia [Recovered/Resolved]
  - Flushing [Recovered/Resolved]
  - Hypotension [Recovered/Resolved]
  - Urticaria [Recovered/Resolved]

NARRATIVE: CASE EVENT DATE: 20210129
